FAERS Safety Report 8965937 (Version 1)
Quarter: 2012Q4

REPORT INFORMATION
  Report Type: 
  Country: US (occurrence: US)
  Receive Date: 20121214
  Receipt Date: 20121214
  Transmission Date: 20130627
  Serious: No
  Sender: FDA-Public Use
  Company Number: US-PFIZER INC-2012317600

PATIENT
  Age: 54 Year
  Sex: Female
  Weight: 137.42 kg

DRUGS (10)
  1. NEURONTIN [Suspect]
     Indication: NEUROPATHY PERIPHERAL
     Dosage: 600 mg, 3x/day
     Route: 048
  2. LYRICA [Suspect]
     Indication: NEUROPATHY PERIPHERAL
     Dosage: 300 mg, 2x/day
     Route: 048
  3. LEVOTHYROXINE [Concomitant]
     Dosage: UNK, 1x/day
  4. LISINOPRIL W/HYDROCHLOROTHIAZIDE [Concomitant]
     Dosage: 20/25 mg/ 2x/day
  5. METFORMIN [Concomitant]
     Dosage: 500 mg, 2x/day
  6. CENTRUM [Concomitant]
     Dosage: UNK
  7. CALTRATE WITH VITAMIN D [Concomitant]
     Dosage: UNK
  8. BIOTIN [Concomitant]
     Dosage: 2500 ug, 2x/day
  9. VITAMIN B12 [Concomitant]
     Dosage: UNK
     Route: 060
  10. HUMALOG [Concomitant]
     Indication: DIABETES
     Dosage: UNK

REACTIONS (2)
  - Nasopharyngitis [Not Recovered/Not Resolved]
  - Glycosylated haemoglobin increased [Unknown]
